FAERS Safety Report 20189608 (Version 1)
Quarter: 2021Q4

REPORT INFORMATION
  Report Type: Spontaneous
  Country: US (occurrence: US)
  Receive Date: 20211215
  Receipt Date: 20211215
  Transmission Date: 20220304
  Serious: Yes (Life-Threatening, Other)
  Sender: FDA-Public Use
  Company Number: US-NAPPMUNDI-GBR-2021-0093172

PATIENT
  Age: 66 Year
  Sex: Male

DRUGS (2)
  1. MORPHINE SULFATE [Suspect]
     Active Substance: MORPHINE SULFATE
     Indication: Back pain
     Dosage: UNKNOWN
     Route: 048
  2. OXYCODONE HYDROCHLORIDE [Suspect]
     Active Substance: OXYCODONE HYDROCHLORIDE
     Indication: Back pain
     Dosage: UNKNOWN
     Route: 048

REACTIONS (6)
  - Pneumothorax [Unknown]
  - Drug dependence [Recovered/Resolved]
  - Drug use disorder [Recovered/Resolved]
  - Rib fracture [Unknown]
  - Drug diversion [Unknown]
  - Fall [Recovered/Resolved]
